FAERS Safety Report 7678374-8 (Version None)
Quarter: 2011Q3

REPORT INFORMATION
  Report Type: 
  Country: None (occurrence: None)
  Receive Date: 20110811
  Receipt Date: 20110601
  Transmission Date: 20111222
  Serious: Yes (Hospitalization)
  Sender: FDA-Public Use
  Company Number: US-BAYER-200922888NA

PATIENT
  Age: 30 Year
  Sex: Female

DRUGS (8)
  1. MAGNEVIST [Suspect]
     Indication: ARTHROGRAM
  2. LIDOCAINE [Suspect]
     Indication: X-RAY LIMB
  3. SODIUM CHLORIDE [Suspect]
     Indication: ARTHROGRAM
  4. OPTIRAY 350 [Suspect]
     Indication: X-RAY LIMB
  5. LIDOCAINE [Suspect]
     Indication: JOINT INJURY
     Route: 014
     Dates: start: 20090429, end: 20090429
  6. OPTIRAY 350 [Suspect]
     Indication: JOINT INJURY
     Dosage: 5-10 ML
     Route: 014
     Dates: start: 20090429, end: 20090429
  7. SODIUM CHLORIDE [Suspect]
     Indication: JOINT INJURY
     Dosage: GIVEN WITH 1 CC OF MAGNEVIST
     Route: 014
     Dates: start: 20090429, end: 20090429
  8. MAGNEVIST [Suspect]
     Indication: JOINT INJURY
     Dosage: 1 CC DILUTED WITH 10 CC OF 0.9 % NORMAL SALINE
     Route: 014
     Dates: start: 20090429, end: 20090429

REACTIONS (4)
  - INJURY [None]
  - SEPTIC ARTHRITIS STAPHYLOCOCCAL [None]
  - ANXIETY [None]
  - PAIN [None]
